FAERS Safety Report 4658890-3 (Version None)
Quarter: 2005Q2

REPORT INFORMATION
  Report Type: 
  Country: None (occurrence: None)
  Receive Date: 20050509
  Receipt Date: 20050425
  Transmission Date: 20051028
  Serious: Yes (Hospitalization)
  Sender: FDA-Public Use
  Company Number: WAES 00101457

PATIENT
  Age: 82 Year
  Sex: Female

DRUGS (2)
  1. VIOXX [Suspect]
     Indication: DEMENTIA ALZHEIMER'S TYPE
     Dosage: 25 MG/DAILY/PO
     Route: 048
  2. PLACEBO (UNSPECIFIED) [Concomitant]

REACTIONS (4)
  - ARTHRALGIA [None]
  - BLOOD CREATININE INCREASED [None]
  - DUODENAL ULCER [None]
  - FAECAL OCCULT BLOOD [None]
